FAERS Safety Report 18501013 (Version 1)
Quarter: 2020Q4

REPORT INFORMATION
  Report Type: Spontaneous
  Country: US (occurrence: US)
  Receive Date: 20201112
  Receipt Date: 20201112
  Transmission Date: 20210114
  Serious: No
  Sender: FDA-Public Use
  Company Number: None

PATIENT
  Age: 50 Year
  Sex: Female

DRUGS (1)
  1. REPATHA [Suspect]
     Active Substance: EVOLOCUMAB
     Indication: BREAST NEOPLASM
     Route: 058
     Dates: start: 20191015

REACTIONS (3)
  - Therapy interrupted [None]
  - Wrist fracture [None]
  - Fall [None]

NARRATIVE: CASE EVENT DATE: 20201013
